FAERS Safety Report 15253882 (Version 3)
Quarter: 2020Q3

REPORT INFORMATION
  Report Type: Spontaneous
  Country: US (occurrence: US)
  Receive Date: 20180808
  Receipt Date: 20200909
  Transmission Date: 20201102
  Serious: Yes (Death, Other)
  Sender: FDA-Public Use
  Company Number: US-AMGEN-USASP2018105842

PATIENT
  Age: 39 Year
  Sex: Male

DRUGS (3)
  1. FLUDARABINE [Concomitant]
     Active Substance: FLUDARABINE PHOSPHATE
     Dosage: UNK
  2. ROMIPLOSTIM [Suspect]
     Active Substance: ROMIPLOSTIM
     Indication: THROMBOCYTOPENIA
     Dosage: 1 MUG/KG, QWK
     Route: 065
  3. CYTARABIN [Concomitant]
     Active Substance: CYTARABINE
     Dosage: UNK

REACTIONS (3)
  - Thrombocytopenia [Unknown]
  - Off label use [Unknown]
  - Acute myeloid leukaemia [Fatal]
